FAERS Safety Report 18878910 (Version 1)
Quarter: 2021Q1

REPORT INFORMATION
  Report Type: Report from Study
  Country: IT (occurrence: IT)
  Receive Date: 20210211
  Receipt Date: 20210211
  Transmission Date: 20210420
  Serious: Yes (Death, Other)
  Sender: FDA-Public Use
  Company Number: IT-TAKEDA-2021TUS008478

PATIENT
  Sex: Male

DRUGS (3)
  1. BRIGATINIB [Suspect]
     Active Substance: BRIGATINIB
     Indication: METASTASIS
     Dosage: UNK
     Route: 065
     Dates: start: 20200221, end: 20200225
  2. ALECTINIB. [Concomitant]
     Active Substance: ALECTINIB
     Dosage: UNK
     Route: 065
  3. CRIZOTINIB [Concomitant]
     Active Substance: CRIZOTINIB
     Dosage: UNK
     Route: 065

REACTIONS (1)
  - Death [Fatal]
